FAERS Safety Report 5586037-8 (Version None)
Quarter: 2007Q4

REPORT INFORMATION
  Report Type: 
  Country: None (occurrence: None)
  Receive Date: 20071205
  Receipt Date: 20070314
  Transmission Date: 20080405
  Serious: Yes (Disabling, Other)
  Sender: FDA-Public Use
  Company Number: HQWYE886115MAR07

PATIENT
  Age: 41 Year
  Sex: Female
  Weight: 53.7 kg

DRUGS (1)
  1. EFFEXOR XR [Suspect]
     Indication: DEPRESSION
     Dosage: 225 MG 1 X PER 1 DAY, ORAL
     Route: 048
     Dates: start: 20010101, end: 20070201

REACTIONS (3)
  - AMNESIA [None]
  - DISORIENTATION [None]
  - MEMORY IMPAIRMENT [None]
